FAERS Safety Report 4335181-1 (Version None)
Quarter: 2004Q2

REPORT INFORMATION
  Report Type: 
  Country: None (occurrence: None)
  Receive Date: 20040408
  Receipt Date: 20040402
  Transmission Date: 20050107
  Serious: Yes (Life-Threatening, Hospitalization, Other)
  Sender: FDA-Public Use
  Company Number: PHNU2004DE01421

PATIENT
  Age: 27 Year
  Sex: Male
  Weight: 92 kg

DRUGS (3)
  1. SANDIMMUNE [Suspect]
     Indication: APLASIA PURE RED CELL
     Dosage: 160MG/DAY
     Route: 048
     Dates: start: 19991101
  2. SIMVAHEXAL [Suspect]
     Indication: HYPERLIPIDAEMIA
     Dosage: 40 MG, QD
     Route: 048
     Dates: start: 20030901
  3. STEROIDS NOS [Concomitant]
     Indication: APLASIA PURE RED CELL
     Dosage: UNK, UNK
     Dates: start: 19991101

REACTIONS (13)
  - ALANINE AMINOTRANSFERASE INCREASED [None]
  - ANOREXIA [None]
  - ASTHENIA [None]
  - BLOOD CREATINE PHOSPHOKINASE INCREASED [None]
  - BLOOD CREATININE INCREASED [None]
  - BLOOD UREA INCREASED [None]
  - FATIGUE [None]
  - HAEMODIALYSIS [None]
  - LIPID METABOLISM DISORDER [None]
  - MYALGIA [None]
  - RENAL FAILURE [None]
  - RENAL FAILURE ACUTE [None]
  - RHABDOMYOLYSIS [None]
